FAERS Safety Report 15996737 (Version 1)
Quarter: 2019Q1

REPORT INFORMATION
  Report Type: Spontaneous
  Country: US (occurrence: US)
  Receive Date: 20190222
  Receipt Date: 20190222
  Transmission Date: 20190418
  Serious: No
  Sender: FDA-Public Use
  Company Number: US-BRISTOL-MYERS SQUIBB COMPANY-BMS-2019-015809

PATIENT
  Sex: Female

DRUGS (1)
  1. KENALOG-40 [Suspect]
     Active Substance: TRIAMCINOLONE ACETONIDE
     Indication: OSTEOARTHRITIS
     Dosage: INJECTION
     Route: 065

REACTIONS (5)
  - Pruritus generalised [Unknown]
  - Wound haemorrhage [Unknown]
  - Hot flush [Unknown]
  - Burning sensation [Unknown]
  - Skin irritation [Unknown]
